FAERS Safety Report 9657451 (Version 2)
Quarter: 2014Q1

REPORT INFORMATION
  Report Type: Spontaneous
  Country: US (occurrence: US)
  Receive Date: 20131030
  Receipt Date: 20140117
  Transmission Date: 20141002
  Serious: Yes (Hospitalization, Other)
  Sender: FDA-Public Use
  Company Number: US-PFIZER INC-2013308039

PATIENT
  Age: 44 Year
  Sex: Male

DRUGS (19)
  1. QUETIAPINE FUMARATE [Suspect]
     Indication: AFFECTIVE DISORDER
     Dosage: 1-3 TABLETS EVERY EVENING
  2. TAMSULOSIN HYDROCHLORIDE [Interacting]
     Dosage: 0.4 MG, DAILY
  3. DOXAZOSIN MESILATE [Interacting]
     Dosage: 8 MG AT BEDTIME
  4. TESTOSTERONE CIPIONATE [Suspect]
     Indication: HYPOGONADISM
     Dosage: 200 MG, EVERY 14 DAYS
     Route: 030
  5. BOCEPREVIR [Interacting]
     Indication: HEPATITIS C
     Dosage: 800 MG, 3X/DAY
  6. PEGINTERFERON ALFA-2B [Concomitant]
     Indication: HEPATITIS C
     Dosage: 120 MCG,1 IN 7 D
     Route: 058
  7. RIBAVIRIN [Concomitant]
     Indication: HEPATITIS C
     Dosage: 400 MG EVERY MORNING AND 600 MG EVERY EVENING
  8. NAPROXEN [Concomitant]
     Indication: PAIN
     Dosage: 500 MG, 2X/DAY AS NEEDED
  9. CYCLOBENZAPRINE [Concomitant]
     Indication: MUSCLE SPASMS
     Dosage: 10 MG EVERY 8 HOURS AS NEEDED
  10. ONDANSETRON [Concomitant]
     Indication: NAUSEA
     Dosage: 4 MG, 4X/DAY
  11. LOSARTAN [Concomitant]
     Dosage: 50 MG, DAILY
  12. ACETAMINOPHEN W/OXYCODONE [Concomitant]
     Indication: PAIN
     Dosage: 5-325 MG EVERY 6 HOURS AS NEEDED
  13. LITHIUM [Concomitant]
     Dosage: 1200 MG AT BEDTIME
  14. LOPERAMIDE [Concomitant]
     Indication: DIARRHOEA
     Dosage: 2 MG, AS NEEDED
  15. ESOMEPRAZOLE [Concomitant]
     Dosage: 40 MG, DAILY
  16. CODEINE W/GUAIFENESIN [Concomitant]
     Indication: COUGH
     Dosage: 15 MG/5 ML - 10 MLS FOUR TIMES DAILY AS NEEDED
  17. EFAVIRENZ [Concomitant]
     Dosage: 600 MG, DAILY
     Route: 048
  18. EMTRICITABINE [Concomitant]
     Dosage: 200 MG, DAILY
     Route: 048
  19. TENOFOVIR DISOPROXIL [Concomitant]
     Dosage: 300 MG, DAILY
     Route: 048

REACTIONS (6)
  - Drug interaction [Recovering/Resolving]
  - Penile operation [Recovering/Resolving]
  - Priapism [Recovering/Resolving]
  - Drug level increased [Recovering/Resolving]
  - Vomiting [Unknown]
  - Nausea [Unknown]
